FAERS Safety Report 8180523-2 (Version None)
Quarter: 2012Q1

REPORT INFORMATION
  Report Type: 
  Country: None (occurrence: None)
  Receive Date: 20120224
  Receipt Date: 20120215
  Transmission Date: 20120608
  Serious: Yes (Hospitalization)
  Sender: FDA-Public Use
  Company Number: AEUSA201200072

PATIENT
  Age: 65 Year
  Sex: Male

DRUGS (13)
  1. ALBUTEROL [Concomitant]
  2. AMLODIPINE [Concomitant]
  3. GUAIFENESIN [Concomitant]
  4. POTASSIUM [Concomitant]
  5. GAMUNEX [Suspect]
  6. FLUTICASONE PROPIONATE [Concomitant]
  7. COREG [Concomitant]
  8. GAMUNEX [Suspect]
     Indication: HYPOGAMMAGLOBULINAEMIA
     Dosage: 45 GM;QM;IV
     Route: 042
     Dates: start: 20120119, end: 20120119
  9. CLARITIN /00917501/ [Concomitant]
  10. GAMUNEX [Suspect]
  11. PRILOSEC /00661201/ [Concomitant]
  12. RITUXIMAB [Concomitant]
  13. CODEINE SULFATE [Concomitant]

REACTIONS (6)
  - GENERAL PHYSICAL HEALTH DETERIORATION [None]
  - MALAISE [None]
  - CHRONIC LYMPHOCYTIC LEUKAEMIA RECURRENT [None]
  - CHOLELITHIASIS [None]
  - HEPATIC FAILURE [None]
  - CHEST PAIN [None]
